FAERS Safety Report 24560858 (Version 1)
Quarter: 2024Q4

REPORT INFORMATION
  Report Type: Spontaneous
  Country: US (occurrence: US)
  Receive Date: 20241029
  Receipt Date: 20241029
  Transmission Date: 20250114
  Serious: Yes (Hospitalization, Other)
  Sender: PFIZER
  Company Number: US-PFIZER INC-202400286777

PATIENT
  Age: 92 Year
  Sex: Female
  Weight: 63.5 kg

DRUGS (1)
  1. VYNDAMAX [Suspect]
     Active Substance: TAFAMIDIS
     Indication: Cardiac disorder
     Dosage: ONE A DAY
     Dates: start: 2023

REACTIONS (6)
  - Dyspnoea [Unknown]
  - Malaise [Unknown]
  - Atrial fibrillation [Unknown]
  - Loss of personal independence in daily activities [Unknown]
  - Gait disturbance [Recovering/Resolving]
  - Tremor [Recovering/Resolving]
